FAERS Safety Report 9221597 (Version 1)
Quarter: 2013Q2

REPORT INFORMATION
  Report Type: Spontaneous
  Country: US (occurrence: US)
  Receive Date: 20130410
  Receipt Date: 20130410
  Transmission Date: 20140414
  Serious: Yes (Hospitalization)
  Sender: FDA-Public Use
  Company Number: US-009507513-1304USA003768

PATIENT
  Sex: Male

DRUGS (2)
  1. LISINOPRIL [Suspect]
     Route: 048
  2. JANUMET [Concomitant]
     Route: 048

REACTIONS (2)
  - Vertigo [Unknown]
  - Dizziness [Unknown]
